FAERS Safety Report 6206786-8 (Version None)
Quarter: 2009Q2

REPORT INFORMATION
  Report Type: 
  Country: None (occurrence: None)
  Receive Date: 20090528
  Receipt Date: 20090520
  Transmission Date: 20091009
  Serious: Yes (Other)
  Sender: FDA-Public Use
  Company Number: US-AVENTIS-200910755US

PATIENT
  Sex: Male
  Weight: 104.32 kg

DRUGS (13)
  1. LOVENOX [Suspect]
     Indication: DEEP VEIN THROMBOSIS
     Dates: start: 20080901, end: 20081001
  2. LOVENOX [Suspect]
     Dates: start: 20081124
  3. LOVENOX [Suspect]
     Indication: ATRIAL FIBRILLATION
     Dates: start: 20080901, end: 20081001
  4. LOVENOX [Suspect]
     Dates: start: 20081124
  5. COUMADIN [Concomitant]
     Dosage: DOSE: UNK
  6. ALPRAZOLAM [Concomitant]
     Dosage: DOSE: UNK
     Route: 048
  7. SOTALOL HYDROCHLORIDE [Concomitant]
     Dosage: DOSE: UNK
     Route: 048
  8. LIPITOR [Concomitant]
     Dosage: DOSE: UNK
     Route: 048
  9. QVAR 40 [Concomitant]
     Dosage: DOSE: UNK
  10. METOPROLOL SUCCINATE [Concomitant]
     Dosage: DOSE: UNK
     Route: 048
  11. LIDODERM [Concomitant]
     Dosage: DOSE: UNK
  12. FLOMAX [Concomitant]
     Dosage: DOSE: UNK
     Route: 048
  13. FLUTICASONE [Concomitant]
     Dosage: DOSE: UNK

REACTIONS (10)
  - ABDOMINAL PAIN [None]
  - ABSCESS [None]
  - CELLULITIS [None]
  - ERYTHEMA [None]
  - HAEMATOMA INFECTION [None]
  - INCORRECT ROUTE OF DRUG ADMINISTRATION [None]
  - INJECTION SITE HAEMATOMA [None]
  - INTERNATIONAL NORMALISED RATIO DECREASED [None]
  - NEOPLASM [None]
  - PYREXIA [None]
